FAERS Safety Report 5967891-4 (Version None)
Quarter: 2008Q4

REPORT INFORMATION
  Report Type: 
  Country: None (occurrence: None)
  Receive Date: 20081126
  Receipt Date: 20081119
  Transmission Date: 20090506
  Serious: Yes (Hospitalization)
  Sender: FDA-Public Use
  Company Number: US-NOVOPROD-281603

PATIENT
  Age: 27 Year
  Sex: Male
  Weight: 73.6 kg

DRUGS (10)
  1. NOVOLOG [Suspect]
     Indication: DIABETES MELLITUS
     Dosage: 10 IU, UNK
     Route: 058
  2. NOVOLOG [Suspect]
     Dosage: 14 IU, UNK
     Route: 058
  3. TEMODAR [Suspect]
     Indication: CENTRAL NERVOUS SYSTEM LYMPHOMA
     Dosage: 100 MG/M2, QD
     Route: 048
     Dates: start: 20080605, end: 20080605
  4. TEMODAR [Suspect]
     Dosage: 100 MG/M2, QD
     Route: 048
     Dates: start: 20080611, end: 20080614
  5. DILAUDID [Suspect]
     Indication: PAIN
     Dosage: 4 MG, PRN
  6. VANCOMYCIN [Suspect]
     Indication: MENINGITIS STAPHYLOCOCCAL
     Route: 042
  7. PHENERGAN HCL [Suspect]
     Indication: NAUSEA
     Dosage: 25 MG, PRN
     Route: 048
  8. XANAX [Suspect]
     Indication: DRUG USE FOR UNKNOWN INDICATION
     Dosage: .25 MG, BID
     Route: 048
  9. METHOTREXATE [Suspect]
     Indication: CENTRAL NERVOUS SYSTEM LYMPHOMA
     Route: 042
     Dates: start: 20080528, end: 20080528
  10. RITUXIMAB [Suspect]
     Indication: CENTRAL NERVOUS SYSTEM LYMPHOMA
     Dosage: 375 MG, UNK
     Dates: start: 20080507, end: 20080507

REACTIONS (4)
  - DYSPNOEA [None]
  - HEADACHE [None]
  - NAUSEA [None]
  - PYREXIA [None]
